FAERS Safety Report 4702511-8 (Version None)
Quarter: 2005Q2

REPORT INFORMATION
  Report Type: 
  Country: None (occurrence: None)
  Receive Date: 20050629
  Receipt Date: 20050609
  Transmission Date: 20051028
  Serious: Yes (Other)
  Sender: FDA-Public Use
  Company Number: JP-JNJFOC-20050606917

PATIENT
  Age: 60 Year
  Sex: Female

DRUGS (10)
  1. REMICADE [Suspect]
     Route: 042
  2. REMICADE [Suspect]
     Route: 042
  3. REMICADE [Suspect]
     Indication: RHEUMATOID ARTHRITIS
     Route: 042
  4. BAKTAR [Concomitant]
  5. BAKTAR [Concomitant]
  6. FLUCONAZOLE [Concomitant]
  7. ISCOTIN [Concomitant]
  8. LOXOPROFEN SODIUM [Concomitant]
  9. METHOTREXATE [Concomitant]
  10. PREDNISOLONE [Concomitant]

REACTIONS (1)
  - LUNG NEOPLASM [None]
